FAERS Safety Report 7094002-7 (Version None)
Quarter: 2010Q4

REPORT INFORMATION
  Report Type: 
  Country: None (occurrence: None)
  Receive Date: 20101101
  Receipt Date: 20101025
  Transmission Date: 20110411
  Serious: Yes (Other)
  Sender: FDA-Public Use
  Company Number: 011616

PATIENT
  Age: 14 Year
  Sex: Male

DRUGS (2)
  1. BUSULFEX [Suspect]
     Dosage: 16 MG/KG
  2. CYCLOPHOSPHAMIDE [Suspect]
     Dosage: 120 MG/KG

REACTIONS (3)
  - CHRONIC MYELOID LEUKAEMIA [None]
  - LEUKAEMIA RECURRENT [None]
  - URETERIC STENOSIS [None]
